FAERS Safety Report 10201915 (Version 1)
Quarter: 2014Q2

REPORT INFORMATION
  Report Type: Spontaneous
  Country: US (occurrence: US)
  Receive Date: 20140528
  Receipt Date: 20140528
  Transmission Date: 20141212
  Serious: Yes (Hospitalization)
  Sender: FDA-Public Use
  Company Number: US-ACTELION-A-US2014-99193

PATIENT
  Age: 79 Year
  Sex: Female

DRUGS (4)
  1. TRACLEER [Suspect]
     Indication: PULMONARY ARTERIAL HYPERTENSION
     Dosage: UNK
     Route: 048
  2. ASA [Concomitant]
     Dosage: 81 MG, UNK
  3. LASIX [Concomitant]
     Dosage: 40 MG, UNK
  4. KLOR CON [Concomitant]
     Dosage: 20 MEQ, UNK

REACTIONS (2)
  - Myocardial infarction [Not Recovered/Not Resolved]
  - Musculoskeletal pain [Not Recovered/Not Resolved]
